FAERS Safety Report 4861849-4 (Version None)
Quarter: 2005Q4

REPORT INFORMATION
  Report Type: 
  Country: None (occurrence: None)
  Receive Date: 20051129
  Receipt Date: 20050523
  Transmission Date: 20060501
  Serious: Yes (Disabling)
  Sender: FDA-Public Use
  Company Number: WAES 0505USA02671

PATIENT
  Age: 38 Year
  Sex: Female

DRUGS (7)
  1. FOSAMAX [Suspect]
     Indication: OSTEOPOROSIS
     Dosage: 70 MG / WKY / PO
     Route: 048
     Dates: start: 20010801, end: 20040801
  2. ADVAIR DISKUS 250/50 [Concomitant]
  3. DITROPAN XL [Concomitant]
  4. LEVOXYL [Concomitant]
  5. NEXIUM [Concomitant]
  6. DICYCLOMINE HYDROCHLORIDE [Concomitant]
  7. LITHIUM HYDROXIDE [Concomitant]

REACTIONS (1)
  - DYSPEPSIA [None]
